FAERS Safety Report 5383082-2 (Version None)
Quarter: 2007Q3

REPORT INFORMATION
  Report Type: 
  Country: None (occurrence: None)
  Receive Date: 20070705
  Receipt Date: 20070620
  Transmission Date: 20080115
  Serious: Yes (Hospitalization)
  Sender: FDA-Public Use
  Company Number: 2007RR-08161

PATIENT
  Age: 27 Year
  Sex: Female

DRUGS (2)
  1. LORATADINE [Suspect]
     Dosage: 10 MG
  2. ESTROPROGESTRINIC [Concomitant]

REACTIONS (1)
  - LARYNGEAL OEDEMA [None]
